FAERS Safety Report 10402229 (Version 2)
Quarter: 2014Q3

REPORT INFORMATION
  Report Type: Report from Study
  Country: US (occurrence: US)
  Receive Date: 20140822
  Receipt Date: 20140822
  Transmission Date: 20150326
  Serious: Yes (Hospitalization)
  Sender: FDA-Public Use
  Company Number: US-ACTELION-A-US2014-103064

PATIENT
  Age: 80 Year
  Sex: Female

DRUGS (3)
  1. TRACLEER [Suspect]
     Active Substance: BOSENTAN\BOSENTAN MONOHYDRATE
     Dosage: 62.5 MG, BID
     Route: 048
     Dates: start: 200706, end: 2007
  2. WARFARIN [Concomitant]
     Active Substance: WARFARIN
  3. TRACLEER [Suspect]
     Active Substance: BOSENTAN\BOSENTAN MONOHYDRATE
     Indication: PULMONARY ARTERIAL HYPERTENSION
     Dosage: 125 MG, BID
     Route: 048
     Dates: start: 200707

REACTIONS (3)
  - Hepatic mass [Recovered/Resolved]
  - Blood bilirubin increased [Unknown]
  - Rhinitis allergic [Recovered/Resolved]

NARRATIVE: CASE EVENT DATE: 201407
